FAERS Safety Report 6029773-1 (Version None)
Quarter: 2009Q1

REPORT INFORMATION
  Report Type: 
  Country: None (occurrence: None)
  Receive Date: 20090106
  Receipt Date: 20090106
  Transmission Date: 20090719
  Serious: Yes (Life-Threatening)
  Sender: FDA-Public Use
  Company Number: None

PATIENT
  Sex: Female

DRUGS (6)
  1. NOVANTRONE [Suspect]
     Indication: SECONDARY PROGRESSIVE MULTIPLE SCLEROSIS
     Dosage: 72MG/M2 TOTAL Q 3 MONTHS (12MG/M2/DOSE) IV X 3 DOSES
     Route: 042
     Dates: start: 20060101, end: 20070101
  2. NOVANTRONE [Suspect]
     Indication: SECONDARY PROGRESSIVE MULTIPLE SCLEROSIS
     Dosage: 72MG/M2 TOTAL Q 3 MONTHS (12MG/M2/DOSE) IV X 3 DOSES
     Route: 042
     Dates: start: 20020101
  3. AVONEX [Concomitant]
  4. BETASERON [Concomitant]
  5. COPAXONE [Concomitant]
  6. STEROIDS [Concomitant]

REACTIONS (1)
  - ACUTE MYELOID LEUKAEMIA [None]
